FAERS Safety Report 20802503 (Version 1)
Quarter: 2022Q2

REPORT INFORMATION
  Report Type: Spontaneous
  Country: US (occurrence: None)
  Receive Date: 20220508
  Receipt Date: 20220508
  Transmission Date: 20220721
  Serious: Yes (Disabling)
  Sender: FDA-Public Use
  Company Number: None

PATIENT
  Age: 33 Year
  Sex: Female

DRUGS (2)
  1. SUBOXONE [Suspect]
     Active Substance: BUPRENORPHINE HYDROCHLORIDE\NALOXONE HYDROCHLORIDE
     Indication: Pain management
     Dosage: OTHER QUANTITY : 1 FILM;?FREQUENCY : TWICE A DAY;?
     Route: 060
     Dates: start: 20130101, end: 20180101
  2. 60MG duloxotene [Concomitant]

REACTIONS (3)
  - Bone loss [None]
  - Loose tooth [None]
  - Tooth disorder [None]
